FAERS Safety Report 4870095-X (Version None)
Quarter: 2005Q4

REPORT INFORMATION
  Report Type: 
  Country: None (occurrence: None)
  Receive Date: 20051227
  Receipt Date: 20051216
  Transmission Date: 20060501
  Serious: Yes (Other)
  Sender: FDA-Public Use
  Company Number: 2005169168

PATIENT
  Age: 67 Year
  Sex: Male
  Weight: 104.3273 kg

DRUGS (2)
  1. COOL MINT LISTERINE (MENTHOL, METHYL SALICYLATE, EUCALYPTOL, THYMOL) [Suspect]
     Indication: ALCOHOLISM
     Dosage: ORAL
     Route: 048
     Dates: start: 20050401
  2. MEDINITE (DEXTROMETHORPHAN HYDROBROMIDE, DOXYLAMINE SUCCINATE, EPHEDRI [Suspect]
     Indication: ALCOHOLISM
     Dosage: ORAL
     Route: 048
     Dates: start: 20050401

REACTIONS (4)
  - ALCOHOL POISONING [None]
  - AMNESIA [None]
  - FALL [None]
  - JOINT DISLOCATION [None]
